FAERS Safety Report 11195431 (Version 1)
Quarter: 2015Q2

REPORT INFORMATION
  Report Type: Spontaneous
  Country: CN (occurrence: None)
  Receive Date: 20150615
  Receipt Date: 20150615
  Transmission Date: 20150821
  Serious: Yes (Other)
  Sender: FDA-Public Use
  Company Number: FK201502699

PATIENT
  Age: 82 Year
  Sex: Male

DRUGS (1)
  1. INTRALIPID [Suspect]
     Active Substance: EGG PHOSPHOLIPIDS\GLYCERIN\SOYBEAN OIL
     Indication: NUTRITIONAL SUPPLEMENTATION
     Route: 041
     Dates: start: 20140930, end: 20140930

REACTIONS (3)
  - Dyspnoea [None]
  - Hyperpyrexia [None]
  - Chills [None]

NARRATIVE: CASE EVENT DATE: 20140930
